FAERS Safety Report 14955169 (Version 2)
Quarter: 2018Q2

REPORT INFORMATION
  Report Type: Spontaneous
  Country: RU (occurrence: RU)
  Receive Date: 20180531
  Receipt Date: 20180612
  Transmission Date: 20180711
  Serious: Yes (Other)
  Sender: FDA-Public Use
  Company Number: RU-ROCHE-2130103

PATIENT
  Age: 43 Year
  Sex: Female

DRUGS (10)
  1. TRASTUZUMAB EMTANSINE [Suspect]
     Active Substance: ADO-TRASTUZUMAB EMTANSINE
     Route: 065
     Dates: start: 201605
  2. PERTUZUMAB. [Concomitant]
     Active Substance: PERTUZUMAB
     Route: 065
     Dates: start: 201703, end: 201707
  3. TAXOTERE [Concomitant]
     Active Substance: DOCETAXEL
     Route: 065
     Dates: start: 201703, end: 201707
  4. TRASTUZUMAB EMTANSINE [Suspect]
     Active Substance: ADO-TRASTUZUMAB EMTANSINE
     Dosage: 14 COURCES: LETROZOLE + TRASTUZUMAB + PERTUZUMAB
     Route: 065
     Dates: start: 201707
  5. LETROZOLE. [Concomitant]
     Active Substance: LETROZOLE
     Route: 065
     Dates: start: 201707
  6. TRASTUZUMAB EMTANSINE [Suspect]
     Active Substance: ADO-TRASTUZUMAB EMTANSINE
     Indication: BREAST CANCER
     Dosage: 2 ADJUVANT COURSES OF PACLITAXEL + TRASTUZUMAB
     Route: 065
     Dates: start: 2015, end: 2015
  7. CYCLOPHOSPHAMIDE. [Concomitant]
     Active Substance: CYCLOPHOSPHAMIDE
  8. PACLITAXEL. [Concomitant]
     Active Substance: PACLITAXEL
     Route: 065
     Dates: start: 2015, end: 2015
  9. ADRIAMYCIN [Concomitant]
     Active Substance: DOXORUBICIN HYDROCHLORIDE
  10. TRASTUZUMAB EMTANSINE [Suspect]
     Active Substance: ADO-TRASTUZUMAB EMTANSINE
     Dosage: 6 COURSES: DOCETAXEL + TRASTUZUMAB + PERTUZUMAB
     Route: 065
     Dates: start: 201703, end: 201707

REACTIONS (1)
  - Postoperative abscess [Recovered/Resolved]

NARRATIVE: CASE EVENT DATE: 2015
